FAERS Safety Report 20893374 (Version 2)
Quarter: 2023Q2

REPORT INFORMATION
  Report Type: Report from Study
  Country: US (occurrence: US)
  Receive Date: 20220531
  Receipt Date: 20230407
  Transmission Date: 20230721
  Serious: No
  Sender: FDA-Public Use
  Company Number: US-KYOWAKIRIN-2022BKK007671

PATIENT

DRUGS (4)
  1. BUROSUMAB [Suspect]
     Active Substance: BUROSUMAB
     Indication: Hereditary hypophosphataemic rickets
     Dosage: 50 MG, 1X/4 WEEKS
     Route: 058
     Dates: start: 20180703
  2. BUROSUMAB [Suspect]
     Active Substance: BUROSUMAB
     Dosage: 50 MG, 1X/4 WEEKS
     Route: 058
     Dates: start: 20180703
  3. BUROSUMAB [Suspect]
     Active Substance: BUROSUMAB
     Indication: Hereditary hypophosphataemic rickets
     Dosage: 50 MG, 1X/4 WEEKS
     Route: 058
     Dates: start: 20180703
  4. BUROSUMAB [Suspect]
     Active Substance: BUROSUMAB
     Dosage: 50 MG, 1X/4 WEEKS
     Route: 058
     Dates: start: 20180703

REACTIONS (8)
  - Carpal tunnel syndrome [Unknown]
  - Urinary tract infection [Unknown]
  - Arthralgia [Unknown]
  - Neck pain [Unknown]
  - Limb discomfort [Unknown]
  - Back pain [Recovering/Resolving]
  - Headache [Unknown]
  - Pain in extremity [Unknown]
